FAERS Safety Report 4765540-4 (Version None)
Quarter: 2005Q3

REPORT INFORMATION
  Report Type: 
  Country: None (occurrence: None)
  Receive Date: 20050906
  Receipt Date: 20050824
  Transmission Date: 20060218
  Serious: Yes (Hospitalization)
  Sender: FDA-Public Use
  Company Number: RENA-11468

PATIENT
  Age: 60 Year
  Sex: Male

DRUGS (8)
  1. PHOSBLOCK - 250 MG TABLET [Suspect]
     Indication: HYPERPHOSPHATAEMIA
     Dosage: 1 G TID PO
     Route: 048
     Dates: start: 20050630, end: 20050701
  2. CALCIUM CARBONATE [Concomitant]
  3. PILSICAINIDE HYDROCHLORIDE [Concomitant]
  4. VALSARTAN [Concomitant]
  5. BISOPROLOL FUMARATE [Concomitant]
  6. CALCITRIOL [Concomitant]
  7. TRIAZOLAM [Concomitant]
  8. ASPIRIN [Concomitant]

REACTIONS (6)
  - ABDOMINAL DISTENSION [None]
  - ABDOMINAL PAIN [None]
  - ASTHENIA [None]
  - DYSSTASIA [None]
  - VERTIGO [None]
  - VOMITING [None]
